FAERS Safety Report 14835692 (Version 1)
Quarter: 2018Q2

REPORT INFORMATION
  Report Type: Report from Study
  Country: None (occurrence: US)
  Receive Date: 20180502
  Receipt Date: 20180502
  Transmission Date: 20180711
  Serious: Yes (Other)
  Sender: FDA-Public Use
  Company Number: US-ABBVIE-18K-163-2339915-00

PATIENT
  Age: 67 Year
  Sex: Female
  Weight: 77.18 kg

DRUGS (4)
  1. HUMIRA [Suspect]
     Active Substance: ADALIMUMAB
     Route: 058
     Dates: start: 201804
  2. HUMIRA [Suspect]
     Active Substance: ADALIMUMAB
     Route: 058
     Dates: start: 201704, end: 201802
  3. HUMIRA [Suspect]
     Active Substance: ADALIMUMAB
     Indication: RHEUMATOID ARTHRITIS
     Route: 058
     Dates: start: 2016, end: 201703
  4. MORPHINE [Suspect]
     Active Substance: MORPHINE
     Indication: ROTATOR CUFF SYNDROME
     Route: 065

REACTIONS (5)
  - Accident at work [Unknown]
  - Rotator cuff syndrome [Recovering/Resolving]
  - Pruritus [Recovering/Resolving]
  - Mobility decreased [Recovering/Resolving]
  - Rotator cuff syndrome [Recovered/Resolved with Sequelae]

NARRATIVE: CASE EVENT DATE: 201612
